FAERS Safety Report 5871139-9 (Version None)
Quarter: 2008Q3

REPORT INFORMATION
  Report Type: 
  Country: None (occurrence: None)
  Receive Date: 20080904
  Receipt Date: 20080818
  Transmission Date: 20090109
  Serious: Yes (Hospitalization)
  Sender: FDA-Public Use
  Company Number: GB-PFIZER INC-2008072615

PATIENT
  Age: 7 Year
  Sex: Female

DRUGS (3)
  1. PREDNISOLONE [Suspect]
     Indication: EVANS SYNDROME
  2. IMMUNE GLOBULIN INTRAVENOUS (HUMAN) [Suspect]
     Indication: EVANS SYNDROME
     Route: 042
  3. RITUXIMAB [Suspect]
     Indication: EVANS SYNDROME

REACTIONS (2)
  - LYMPHOPROLIFERATIVE DISORDER [None]
  - PULMONARY ARTERIAL HYPERTENSION [None]
